FAERS Safety Report 10404094 (Version 1)
Quarter: 2014Q3

REPORT INFORMATION
  Report Type: Report from Study
  Country: BR (occurrence: BR)
  Receive Date: 20140823
  Receipt Date: 20140823
  Transmission Date: 20150326
  Serious: Yes (Other)
  Sender: FDA-Public Use
  Company Number: BR-ABBVIE-14K-020-1273352-00

PATIENT
  Age: 55 Year
  Sex: Female
  Weight: 60 kg

DRUGS (4)
  1. LOSARTAN [Concomitant]
     Active Substance: LOSARTAN
     Indication: HYPERTENSION
     Route: 048
     Dates: start: 2011
  2. UNKNOWN MEDICATION [Suspect]
     Active Substance: UNSPECIFIED INGREDIENT
     Indication: TUBERCULOSIS
  3. HUMIRA [Suspect]
     Active Substance: ADALIMUMAB
     Indication: PSORIATIC ARTHROPATHY
     Route: 058
     Dates: start: 201302, end: 201308
  4. SIMVASTATIN. [Concomitant]
     Active Substance: SIMVASTATIN
     Indication: BLOOD CHOLESTEROL ABNORMAL
     Route: 048
     Dates: start: 20140630

REACTIONS (7)
  - Blood cholesterol increased [Unknown]
  - Pleural effusion [Recovered/Resolved]
  - Back pain [Recovered/Resolved]
  - Pulmonary tuberculosis [Recovered/Resolved]
  - Immunodeficiency [Recovered/Resolved]
  - Liver disorder [Recovered/Resolved]
  - Vomiting [Recovered/Resolved]

NARRATIVE: CASE EVENT DATE: 201308
